FAERS Safety Report 7991579-1 (Version None)
Quarter: 2011Q4

REPORT INFORMATION
  Report Type: 
  Country: None (occurrence: None)
  Receive Date: 20111219
  Receipt Date: 20101227
  Transmission Date: 20120403
  Serious: No
  Sender: FDA-Public Use
  Company Number: US-ABBOTT-10P-163-0694421-00

PATIENT
  Sex: Male
  Weight: 83.99 kg

DRUGS (1)
  1. ADVICOR [Suspect]
     Indication: BLOOD CHOLESTEROL INCREASED
     Dates: start: 20060101, end: 20101201

REACTIONS (6)
  - SEXUAL DYSFUNCTION [None]
  - AMNESIA [None]
  - MYALGIA [None]
  - TERMINAL INSOMNIA [None]
  - POOR QUALITY SLEEP [None]
  - ARTHRALGIA [None]
